FAERS Safety Report 7395204-2 (Version None)
Quarter: 2011Q2

REPORT INFORMATION
  Report Type: 
  Country: None (occurrence: None)
  Receive Date: 20110405
  Receipt Date: 20100116
  Transmission Date: 20111010
  Serious: Yes (Death, Other)
  Sender: FDA-Public Use
  Company Number: US-BAYER-201011204NA

PATIENT
  Sex: Female
  Weight: 77 kg

DRUGS (2)
  1. TRASYLOL [Suspect]
     Indication: CORONARY ARTERY BYPASS
     Dates: start: 19991031
  2. ADVIL LIQUI-GELS [Concomitant]
     Dosage: VARIES

REACTIONS (16)
  - DEPRESSION [None]
  - ANXIETY DISORDER [None]
  - RENAL INJURY [None]
  - INJURY [None]
  - RENAL FAILURE [None]
  - ORGAN FAILURE [None]
  - UNEVALUABLE EVENT [None]
  - DEATH [None]
  - CEREBROVASCULAR ACCIDENT [None]
  - CARDIAC DISORDER [None]
  - ANXIETY [None]
  - FEAR [None]
  - ANHEDONIA [None]
  - POST PROCEDURAL COMPLICATION [None]
  - RENAL IMPAIRMENT [None]
  - PAIN [None]
